FAERS Safety Report 25400747 (Version 2)
Quarter: 2025Q4

REPORT INFORMATION
  Report Type: Report from Study
  Country: CN (occurrence: CN)
  Receive Date: 20250605
  Receipt Date: 20251214
  Transmission Date: 20260118
  Serious: Yes (Death)
  Sender: ROCHE
  Company Number: CN-ROCHE-10000303596

PATIENT
  Age: 51 Year
  Sex: Female
  Weight: 63.7 kg

DRUGS (91)
  1. POLATUZUMAB VEDOTIN [Suspect]
     Active Substance: POLATUZUMAB VEDOTIN
     Indication: Diffuse large B-cell lymphoma
     Dosage: ONCE BEFORE INFUSION
     Route: 041
     Dates: start: 20240406, end: 20240406
  2. POLATUZUMAB VEDOTIN [Suspect]
     Active Substance: POLATUZUMAB VEDOTIN
     Dosage: ONCE BEFORE INFUSION
     Route: 041
  3. POLATUZUMAB VEDOTIN [Suspect]
     Active Substance: POLATUZUMAB VEDOTIN
     Route: 041
     Dates: start: 20240429, end: 20240429
  4. RITUXIMAB [Suspect]
     Active Substance: RITUXIMAB
     Indication: Diffuse large B-cell lymphoma
     Dosage: ONCE BEFORE INFUSION
     Route: 041
     Dates: start: 20240407, end: 20240407
  5. RITUXIMAB [Suspect]
     Active Substance: RITUXIMAB
     Dosage: ONCE BEFORE INFUSION
     Route: 041
  6. RITUXIMAB [Suspect]
     Active Substance: RITUXIMAB
     Dosage: ONCE BEFORE INFUSION
     Route: 041
     Dates: start: 20240430, end: 20240430
  7. METHYLPREDNISOLONE SODIUM SUCCINATE [Suspect]
     Active Substance: METHYLPREDNISOLONE SODIUM SUCCINATE
     Indication: Diffuse large B-cell lymphoma
     Route: 041
     Dates: start: 20240430, end: 20240504
  8. METHOTREXATE [Suspect]
     Active Substance: METHOTREXATE
     Indication: Diffuse large B-cell lymphoma
     Dosage: ONCE BEFORE INFUSION
     Route: 041
     Dates: start: 20240404, end: 20240404
  9. METHOTREXATE [Suspect]
     Active Substance: METHOTREXATE
     Dosage: ONCE BEFORE INFUSION
     Route: 041
  10. METHOTREXATE [Suspect]
     Active Substance: METHOTREXATE
     Dosage: 6 HOURS OF MAINTENANCE, FOLLOWED BY 12 HOURS OF?RESCUE AFTER THE END
     Route: 041
  11. CYCLOPHOSPHAMIDE [Suspect]
     Active Substance: CYCLOPHOSPHAMIDE
     Indication: Diffuse large B-cell lymphoma
     Dosage: ONCE BEFORE INFUSION
     Route: 041
     Dates: start: 20240404, end: 20240404
  12. CYCLOPHOSPHAMIDE [Suspect]
     Active Substance: CYCLOPHOSPHAMIDE
     Route: 041
     Dates: start: 20240405, end: 20240405
  13. CYCLOPHOSPHAMIDE [Suspect]
     Active Substance: CYCLOPHOSPHAMIDE
     Dosage: ONCE BEFORE INFUSION
     Route: 041
  14. CYCLOPHOSPHAMIDE [Suspect]
     Active Substance: CYCLOPHOSPHAMIDE
     Route: 041
     Dates: start: 20240501, end: 20240501
  15. VINCRISTINE [Suspect]
     Active Substance: VINCRISTINE
     Indication: Diffuse large B-cell lymphoma
     Dosage: ONCE BEFORE INFUSION
     Route: 041
     Dates: start: 20240405, end: 20240405
  16. VINCRISTINE [Suspect]
     Active Substance: VINCRISTINE
     Route: 041
     Dates: start: 20240430, end: 20240430
  17. METHYLPREDNISOLONE [Suspect]
     Active Substance: METHYLPREDNISOLONE
     Indication: Diffuse large B-cell lymphoma
     Dosage: ONCE BEFORE INFUSION
     Route: 048
     Dates: start: 20240404, end: 20240408
  18. METHYLPREDNISOLONE [Suspect]
     Active Substance: METHYLPREDNISOLONE
     Dosage: ONCE BEFORE INFUSION
     Route: 048
  19. METHYLPREDNISOLONE [Suspect]
     Active Substance: METHYLPREDNISOLONE
     Dosage: ONCE BEFORE INFUSION
     Route: 048
  20. ZANUBRUTINIB [Suspect]
     Active Substance: ZANUBRUTINIB
     Indication: Diffuse large B-cell lymphoma
     Dosage: ONCE BEFORE INFUSION
     Route: 048
     Dates: start: 20240407, end: 20240411
  21. ZANUBRUTINIB [Suspect]
     Active Substance: ZANUBRUTINIB
     Dosage: ONCE BEFORE INFUSION
     Route: 048
     Dates: start: 20240706, end: 20240709
  22. ZANUBRUTINIB [Suspect]
     Active Substance: ZANUBRUTINIB
     Route: 048
     Dates: start: 20240429, end: 20240520
  23. DOXORUBICIN HYDROCHLORIDE [Suspect]
     Active Substance: DOXORUBICIN HYDROCHLORIDE
     Indication: Diffuse large B-cell lymphoma
     Dosage: ONCE BEFORE INFUSION
     Route: 041
  24. DOXORUBICIN HYDROCHLORIDE [Suspect]
     Active Substance: DOXORUBICIN HYDROCHLORIDE
     Route: 041
     Dates: start: 20240404, end: 20240405
  25. DOXORUBICIN HYDROCHLORIDE [Suspect]
     Active Substance: DOXORUBICIN HYDROCHLORIDE
     Dosage: ONCE BEFORE INFUSION
     Route: 041
     Dates: start: 20240501, end: 20240502
  26. ACETYLCYSTEINE [Concomitant]
     Active Substance: ACETYLCYSTEINE
     Indication: Productive cough
     Route: 055
     Dates: start: 20240401, end: 20240401
  27. ACETYLCYSTEINE [Concomitant]
     Active Substance: ACETYLCYSTEINE
     Route: 055
  28. CEFTAZIDIME [Concomitant]
     Active Substance: CEFTAZIDIME
     Route: 041
     Dates: start: 20240401, end: 20240403
  29. CEFTAZIDIME [Concomitant]
     Active Substance: CEFTAZIDIME
     Route: 041
  30. OMEPRAZOLE SODIUM [Concomitant]
     Active Substance: OMEPRAZOLE SODIUM
     Route: 041
     Dates: start: 20240402
  31. OMEPRAZOLE SODIUM [Concomitant]
     Active Substance: OMEPRAZOLE SODIUM
     Route: 041
  32. MAGNESIUM ISOGLYCYRRHIZINATE [Concomitant]
     Active Substance: MAGNESIUM ISOGLYCYRRHIZINATE
     Route: 041
     Dates: start: 20240402, end: 20240408
  33. MAGNESIUM ISOGLYCYRRHIZINATE [Concomitant]
     Active Substance: MAGNESIUM ISOGLYCYRRHIZINATE
     Route: 041
     Dates: start: 20240411, end: 20240412
  34. MAGNESIUM ISOGLYCYRRHIZINATE [Concomitant]
     Active Substance: MAGNESIUM ISOGLYCYRRHIZINATE
     Route: 041
  35. MAGNESIUM ISOGLYCYRRHIZINATE [Concomitant]
     Active Substance: MAGNESIUM ISOGLYCYRRHIZINATE
     Route: 041
  36. GLUTATHIONE [Concomitant]
     Active Substance: GLUTATHIONE
     Route: 041
     Dates: start: 20240402, end: 20240412
  37. GLUTATHIONE [Concomitant]
     Active Substance: GLUTATHIONE
     Route: 041
  38. VITAMIN B6 [Concomitant]
     Active Substance: PYRIDOXINE HYDROCHLORIDE
     Route: 041
     Dates: start: 20240402, end: 20240403
  39. VITAMIN B6 [Concomitant]
     Active Substance: PYRIDOXINE HYDROCHLORIDE
     Route: 041
     Dates: start: 20240404, end: 20240406
  40. SODIUM BICARBONATE [Concomitant]
     Active Substance: SODIUM BICARBONATE
     Route: 041
     Dates: start: 20240401, end: 20240410
  41. SODIUM BICARBONATE [Concomitant]
     Active Substance: SODIUM BICARBONATE
     Route: 041
     Dates: end: 20240618
  42. ISOSORBIDE MONONITRATE [Concomitant]
     Active Substance: ISOSORBIDE MONONITRATE
     Route: 041
     Dates: start: 20240402, end: 20240412
  43. ISOSORBIDE MONONITRATE [Concomitant]
     Active Substance: ISOSORBIDE MONONITRATE
     Route: 041
  44. MEROPENEM [Concomitant]
     Active Substance: MEROPENEM
     Route: 041
     Dates: start: 20240403, end: 20240412
  45. MEROPENEM [Concomitant]
     Active Substance: MEROPENEM
     Route: 041
  46. PROMETHAZINE HYDROCHLORIDE [Concomitant]
     Active Substance: PROMETHAZINE HYDROCHLORIDE
     Indication: Vomiting
     Route: 030
     Dates: start: 20240404
  47. PROMETHAZINE HYDROCHLORIDE [Concomitant]
     Active Substance: PROMETHAZINE HYDROCHLORIDE
     Route: 041
     Dates: start: 20240610, end: 20240612
  48. LEUCOVORIN CALCIUM [Concomitant]
     Active Substance: LEUCOVORIN CALCIUM
     Dates: start: 20240405, end: 20240410
  49. LEUCOVORIN CALCIUM [Concomitant]
     Active Substance: LEUCOVORIN CALCIUM
     Dates: start: 20240410, end: 20240412
  50. LEUCOVORIN CALCIUM [Concomitant]
     Active Substance: LEUCOVORIN CALCIUM
  51. LEUCOVORIN CALCIUM [Concomitant]
     Active Substance: LEUCOVORIN CALCIUM
     Dates: start: 20240611, end: 20240618
  52. POTASSIUM CHLORIDE [Concomitant]
     Active Substance: POTASSIUM CHLORIDE
     Route: 048
     Dates: start: 20240406, end: 20240410
  53. POTASSIUM CHLORIDE [Concomitant]
     Active Substance: POTASSIUM CHLORIDE
     Route: 048
  54. PROMETHAZINE [Concomitant]
     Active Substance: PROMETHAZINE HYDROCHLORIDE
     Indication: Antiallergic therapy
     Route: 030
     Dates: start: 20240406
  55. PROMETHAZINE [Concomitant]
     Active Substance: PROMETHAZINE HYDROCHLORIDE
     Route: 030
  56. FEBUXOSTAT [Concomitant]
     Active Substance: FEBUXOSTAT
     Indication: Blood uric acid decreased
     Route: 048
     Dates: start: 20240408, end: 20240411
  57. FEBUXOSTAT [Concomitant]
     Active Substance: FEBUXOSTAT
     Route: 048
  58. LEVAMLODIPINE BESYLATE [Concomitant]
     Active Substance: LEVAMLODIPINE BESYLATE
     Indication: Hypotension
     Route: 048
     Dates: start: 20240408, end: 20240412
  59. LEVAMLODIPINE BESYLATE [Concomitant]
     Active Substance: LEVAMLODIPINE BESYLATE
     Route: 048
  60. RECOMBINANT HUMAN THROMBOPOIETIN [Concomitant]
     Route: 058
     Dates: start: 20240409, end: 20240412
  61. RECOMBINANT HUMAN THROMBOPOIETIN [Concomitant]
     Route: 058
  62. METHYLCOBALAMIN [Concomitant]
     Active Substance: METHYLCOBALAMIN
     Route: 030
     Dates: start: 20240409, end: 20240412
  63. METHYLCOBALAMIN [Concomitant]
     Active Substance: METHYLCOBALAMIN
     Route: 030
  64. METOPROLOL SUCCINATE [Concomitant]
     Active Substance: METOPROLOL SUCCINATE
     Indication: Hypotension
     Route: 048
     Dates: start: 20240410, end: 20240410
  65. METOPROLOL SUCCINATE [Concomitant]
     Active Substance: METOPROLOL SUCCINATE
     Route: 048
     Dates: start: 20240411, end: 20240412
  66. METOPROLOL SUCCINATE [Concomitant]
     Active Substance: METOPROLOL SUCCINATE
     Route: 048
  67. VANCOMYCIN HYDROCHLORIDE [Concomitant]
     Active Substance: VANCOMYCIN HYDROCHLORIDE
     Route: 041
     Dates: start: 20240412, end: 20240412
  68. VANCOMYCIN HYDROCHLORIDE [Concomitant]
     Active Substance: VANCOMYCIN HYDROCHLORIDE
     Route: 041
  69. NIFEDIPINE [Concomitant]
     Active Substance: NIFEDIPINE
     Indication: Hypotension
  70. MANNITOL [Concomitant]
     Active Substance: MANNITOL
     Route: 041
  71. LIDOCAINE HYDROCHLORIDE [Concomitant]
     Active Substance: LIDOCAINE HYDROCHLORIDE
     Indication: Local anaesthesia
     Route: 058
  72. LIDOCAINE HYDROCHLORIDE [Concomitant]
     Active Substance: LIDOCAINE HYDROCHLORIDE
     Route: 058
  73. PALONOSETRON HYDROCHLORIDE [Concomitant]
     Active Substance: PALONOSETRON HYDROCHLORIDE
     Indication: Vomiting
     Route: 048
  74. PALONOSETRON HYDROCHLORIDE [Concomitant]
     Active Substance: PALONOSETRON HYDROCHLORIDE
     Route: 048
  75. DEXAMETHASONE SODIUM PHOSPHATE [Concomitant]
     Active Substance: DEXAMETHASONE SODIUM PHOSPHATE
  76. FUROSEMIDE [Concomitant]
     Active Substance: FUROSEMIDE
  77. AUREOMYCIN HYDROCHLORIDE [Concomitant]
  78. CHLORHEXIDINE [Concomitant]
     Active Substance: CHLORHEXIDINE
  79. ENTECAVIR [Concomitant]
     Active Substance: ENTECAVIR
     Route: 048
  80. METOPROLOL [Concomitant]
     Active Substance: METOPROLOL
     Route: 048
     Dates: start: 20240714
  81. ROXADUSTAT [Concomitant]
     Active Substance: ROXADUSTAT
     Route: 048
     Dates: start: 20240530
  82. AMIFOSTINE [Concomitant]
     Active Substance: AMIFOSTINE
     Dates: end: 20240412
  83. METHANDROSTENOLONE [Concomitant]
     Active Substance: METHANDROSTENOLONE
  84. OMEPRAZOLE [Concomitant]
     Active Substance: OMEPRAZOLE
     Route: 048
     Dates: end: 20240618
  85. THROMBIN [Concomitant]
     Active Substance: THROMBIN
     Indication: Haemorrhage
  86. ACETAMINOPHEN\ASPIRIN\CAFFEINE [Concomitant]
     Active Substance: ACETAMINOPHEN\ASPIRIN\CAFFEINE
     Route: 048
     Dates: start: 20240610, end: 20240612
  87. SPIRONOLACTONE [Concomitant]
     Active Substance: SPIRONOLACTONE
     Route: 048
     Dates: end: 20240412
  88. SODIUM LACTATE [Concomitant]
     Active Substance: SODIUM LACTATE
     Route: 041
     Dates: start: 20240612, end: 20240618
  89. SULFAMETHOXAZOLE [Concomitant]
     Active Substance: SULFAMETHOXAZOLE
     Route: 048
     Dates: end: 20240916
  90. METOCLOPRAMIDE HYDROCHLORIDE [Concomitant]
     Active Substance: METOCLOPRAMIDE HYDROCHLORIDE
     Route: 041
  91. FLUCONAZOLE [Concomitant]
     Active Substance: FLUCONAZOLE
     Route: 048
     Dates: start: 20240617, end: 20240827

REACTIONS (1)
  - Death [Fatal]

NARRATIVE: CASE EVENT DATE: 20241124
